FAERS Safety Report 9889239 (Version 1)
Quarter: 2014Q1

REPORT INFORMATION
  Report Type: Report from Study
  Country: TW (occurrence: TW)
  Receive Date: 20140211
  Receipt Date: 20140211
  Transmission Date: 20141002
  Serious: Yes (Hospitalization)
  Sender: FDA-Public Use
  Company Number: TW-ONYX-2014-0288

PATIENT
  Age: 62 Year
  Sex: Male

DRUGS (17)
  1. CARFILZOMIB [Suspect]
     Indication: PLASMA CELL MYELOMA
     Route: 042
     Dates: start: 20130701, end: 20130702
  2. CARFILZOMIB [Suspect]
     Route: 042
     Dates: start: 20130708, end: 20130716
  3. CARFILZOMIB [Suspect]
     Route: 042
     Dates: start: 20130730
  4. DEXAMETHASONE [Suspect]
     Indication: PLASMA CELL MYELOMA
     Route: 048
     Dates: start: 20130701, end: 20130910
  5. DEXAMETHASONE [Suspect]
     Route: 048
     Dates: start: 20130911, end: 20130918
  6. DEXAMETHASONE [Suspect]
     Route: 048
     Dates: start: 20130924
  7. CINCHOCAINE HYDROCHLORIDE+HYDROCORTISONE (PROCTOSEDYL OINT) [Concomitant]
     Indication: HAEMORRHOIDS
     Route: 050
     Dates: start: 20130606
  8. NEXIUM(ESOOMEPRAZOLE [Concomitant]
     Indication: PROPHYLAXIS
     Route: 048
     Dates: start: 20130701
  9. VALTERX [Concomitant]
     Indication: PROPHYLAXIS
     Route: 048
     Dates: start: 20130701
  10. COUGH MIXTURE [Concomitant]
     Indication: INFLUENZA
     Route: 048
     Dates: start: 20130801
  11. NINCORT [Concomitant]
     Indication: INFECTION PROPHYLAXIS
     Route: 048
     Dates: start: 20130801
  12. NORVASC [Concomitant]
     Indication: HYPERTENSION
     Route: 048
     Dates: start: 20130918
  13. ZOLENDRONIC ACID [Concomitant]
     Indication: PROPHYLAXIS
     Route: 042
     Dates: start: 20140109, end: 20140109
  14. ZOLENDRONIC ACID [Concomitant]
     Route: 042
     Dates: start: 20140121, end: 20140121
  15. TRIAMCINOLONE CREAM [Concomitant]
     Indication: FOLLICULITIS
     Route: 061
     Dates: start: 20140114
  16. ELOMET [Concomitant]
     Indication: FOLLICULITIS
     Route: 061
     Dates: start: 20140121
  17. MINLIFE [Concomitant]
     Indication: FOLLICULITIS
     Route: 048
     Dates: start: 20140121

REACTIONS (1)
  - Hypogammaglobulinaemia [Recovered/Resolved]
